FAERS Safety Report 4787466-2 (Version None)
Quarter: 2005Q4

REPORT INFORMATION
  Report Type: 
  Country: None (occurrence: None)
  Receive Date: 20051004
  Receipt Date: 20050929
  Transmission Date: 20060501
  Serious: Yes (Hospitalization)
  Sender: FDA-Public Use
  Company Number: GB-SANOFI-SYNTHELABO-A01200506659

PATIENT
  Sex: Female

DRUGS (2)
  1. OXALIPLATIN [Suspect]
     Dosage: UNK
     Route: 042
  2. FLUOROURACIL [Suspect]
     Route: 042

REACTIONS (1)
  - CEREBROVASCULAR ACCIDENT [None]
